FAERS Safety Report 12028489 (Version 1)
Quarter: 2016Q1

REPORT INFORMATION
  Report Type: Spontaneous
  Country: US (occurrence: US)
  Receive Date: 20160207
  Receipt Date: 20160207
  Transmission Date: 20160526
  Serious: No
  Sender: FDA-Public Use
  Company Number: US-ASTRAZENECA-2016SE11897

PATIENT
  Sex: Male

DRUGS (1)
  1. BRILINTA [Suspect]
     Active Substance: TICAGRELOR
     Indication: ACUTE CORONARY SYNDROME
     Dosage: 90MG 3/TIMES IN ONE DAY. (9:30AM, 9:00PM AND 12 MIDNIGHT
     Route: 048

REACTIONS (2)
  - Off label use [Unknown]
  - Anxiety [Unknown]
